FAERS Safety Report 5523226-2 (Version None)
Quarter: 2007Q4

REPORT INFORMATION
  Report Type: 
  Country: None (occurrence: None)
  Receive Date: 20071121
  Receipt Date: 20071119
  Transmission Date: 20080405
  Serious: Yes (Other)
  Sender: FDA-Public Use
  Company Number: GR-BRISTOL-MYERS SQUIBB COMPANY-13987953

PATIENT
  Age: 60 Year
  Sex: Male

DRUGS (1)
  1. PRAVASTATIN SODIUM [Suspect]

REACTIONS (1)
  - PLEURAL EFFUSION [None]
